FAERS Safety Report 22192305 (Version 5)
Quarter: 2025Q1

REPORT INFORMATION
  Report Type: Spontaneous
  Country: GB (occurrence: GB)
  Receive Date: 20230410
  Receipt Date: 20250320
  Transmission Date: 20250408
  Serious: Yes (Life-Threatening, Hospitalization, Other)
  Sender: TEVA
  Company Number: GB-TEVA-2023-GB-2875715

PATIENT
  Age: 26 Year
  Sex: Female

DRUGS (8)
  1. LANSOPRAZOLE [Suspect]
     Active Substance: LANSOPRAZOLE
     Indication: Drug therapy
     Route: 065
  2. AMOXICILLIN [Suspect]
     Active Substance: AMOXICILLIN
     Indication: Toothache
     Route: 065
  3. METRONIDAZOLE [Suspect]
     Active Substance: METRONIDAZOLE
     Indication: Toothache
     Route: 065
  4. COCODAMOL [Concomitant]
     Active Substance: ACETAMINOPHEN\CODEINE PHOSPHATE
     Indication: Toothache
     Route: 065
  5. FLUCLOXACILLIN [Suspect]
     Active Substance: FLUCLOXACILLIN
     Indication: Clostridium difficile infection
     Route: 065
  6. PENICILLIN V [Suspect]
     Active Substance: PENICILLIN V
     Indication: Clostridium difficile infection
     Route: 065
  7. HYDROXYCHLOROQUINE [Concomitant]
     Active Substance: HYDROXYCHLOROQUINE
     Indication: Systemic lupus erythematosus
  8. ACETAMINOPHEN\CODEINE PHOSPHATE [Suspect]
     Active Substance: ACETAMINOPHEN\CODEINE PHOSPHATE
     Indication: Toothache
     Route: 065

REACTIONS (4)
  - Sepsis [Unknown]
  - Dermatitis bullous [Recovered/Resolved]
  - Erythema [Recovered/Resolved]
  - Toxic epidermal necrolysis [Recovered/Resolved]
